FAERS Safety Report 25427384 (Version 1)
Quarter: 2025Q2

REPORT INFORMATION
  Report Type: Report from Study
  Country: IE (occurrence: IE)
  Receive Date: 20250612
  Receipt Date: 20250612
  Transmission Date: 20250716
  Serious: Yes (Other)
  Sender: NOVARTIS
  Company Number: IE-002147023-NVSC2025IE093434

PATIENT
  Age: 56 Year
  Sex: Female

DRUGS (1)
  1. COSENTYX [Suspect]
     Active Substance: SECUKINUMAB
     Indication: Ankylosing spondylitis
     Dosage: UNK UNK, QMO
     Route: 050
     Dates: start: 20250410

REACTIONS (2)
  - Lower respiratory tract infection [Not Recovered/Not Resolved]
  - Diversion colitis [Recovered/Resolved]
